FAERS Safety Report 7240959-0 (Version None)
Quarter: 2011Q1

REPORT INFORMATION
  Report Type: 
  Country: None (occurrence: None)
  Receive Date: 20110124
  Receipt Date: 20110119
  Transmission Date: 20110831
  Serious: Yes (Death)
  Sender: FDA-Public Use
  Company Number: PHHY2011JP04451

PATIENT
  Age: 13 Year
  Sex: Male

DRUGS (3)
  1. CYCLOSPORINE [Suspect]
     Dosage: UNK
     Route: 048
  2. PREDNISOLONE [Concomitant]
     Indication: IGA NEPHROPATHY
     Dosage: 2 MG/ KG
  3. MIZORIBINE [Concomitant]
     Indication: IGA NEPHROPATHY
     Route: 048

REACTIONS (1)
  - PNEUMOCYSTIS JIROVECI PNEUMONIA [None]
